FAERS Safety Report 5500196-4 (Version None)
Quarter: 2007Q4

REPORT INFORMATION
  Report Type: 
  Country: None (occurrence: None)
  Receive Date: 20071025
  Receipt Date: 20071011
  Transmission Date: 20080405
  Serious: Yes (Other)
  Sender: FDA-Public Use
  Company Number: GXKR2007BE05446

PATIENT
  Age: 15 Year
  Sex: Female

DRUGS (4)
  1. CLARITHROMYCIN [Suspect]
     Indication: HELICOBACTER GASTRITIS
     Dosage: ORAL
     Route: 048
  2. TACROLIMUS [Suspect]
     Indication: IMMUNOSUPPRESSION
  3. AMOXICILLIN [Concomitant]
  4. OMEPRAZOLE [Concomitant]

REACTIONS (8)
  - CONVULSION [None]
  - DEHYDRATION [None]
  - DIARRHOEA [None]
  - DRUG INTERACTION [None]
  - DRUG LEVEL INCREASED [None]
  - OLIGURIA [None]
  - RENAL DISORDER [None]
  - VOMITING [None]
